FAERS Safety Report 14906330 (Version 1)
Quarter: 2018Q2

REPORT INFORMATION
  Report Type: Spontaneous
  Country: US (occurrence: US)
  Receive Date: 20180517
  Receipt Date: 20180517
  Transmission Date: 20180711
  Serious: No
  Sender: FDA-Public Use
  Company Number: US-SA-2018SA090387

PATIENT
  Sex: Female

DRUGS (5)
  1. TRULICITY [Concomitant]
     Active Substance: DULAGLUTIDE
  2. LANTUS SOLOSTAR [Suspect]
     Active Substance: INSULIN GLARGINE
     Dosage: 15 UNITS EVERY PM
     Route: 051
  3. SOLOSTAR [Suspect]
     Active Substance: DEVICE
  4. LANTUS SOLOSTAR [Suspect]
     Active Substance: INSULIN GLARGINE
     Dosage: 10 UNITS OF INSULIN EVERY PM
     Route: 051
  5. SOLOSTAR [Suspect]
     Active Substance: DEVICE

REACTIONS (2)
  - Underdose [Unknown]
  - Injection site pain [Unknown]
